FAERS Safety Report 7603029-5 (Version None)
Quarter: 2011Q3

REPORT INFORMATION
  Report Type: 
  Country: None (occurrence: None)
  Receive Date: 20110701
  Receipt Date: 20110616
  Transmission Date: 20111222
  Serious: Yes (Hospitalization)
  Sender: FDA-Public Use
  Company Number: 1000021775

PATIENT
  Age: 39 Year
  Sex: Male

DRUGS (5)
  1. ESCITALOPRAM [Suspect]
     Indication: DEPRESSION
     Dosage: ORAL
     Route: 048
     Dates: end: 20110402
  2. ALCOHOL (ETHANOL) [Suspect]
  3. ACETAMINOPHEN AND TRAMADOL HCL [Concomitant]
  4. XANAX [Suspect]
     Dosage: OVERDOSE, ORAL
     Route: 048
     Dates: end: 20110402
  5. RAMIPRIL [Concomitant]

REACTIONS (3)
  - COMA SCALE ABNORMAL [None]
  - ANXIETY [None]
  - GAMMA-GLUTAMYLTRANSFERASE INCREASED [None]
